FAERS Safety Report 19097764 (Version 2)
Quarter: 2021Q2

REPORT INFORMATION
  Report Type: Report from Study
  Country: CA (occurrence: CA)
  Receive Date: 20210406
  Receipt Date: 20210601
  Transmission Date: 20210717
  Serious: Yes (Hospitalization)
  Sender: FDA-Public Use
  Company Number: CA-IPSEN BIOPHARMACEUTICALS, INC.-2021-08723

PATIENT
  Sex: Male

DRUGS (9)
  1. SOMATULINE AUTOGEL [Suspect]
     Active Substance: LANREOTIDE ACETATE
     Indication: NEUROENDOCRINE TUMOUR
     Route: 058
     Dates: start: 20200228
  2. METOPROLOL. [Concomitant]
     Active Substance: METOPROLOL
  3. CAPECITABINE. [Concomitant]
     Active Substance: CAPECITABINE
     Dosage: 150 MG, 3 TABLETS TWICE A DAY
  4. LIXIANA [Concomitant]
     Active Substance: EDOXABAN TOSYLATE
  5. OXYCODONE [Concomitant]
     Active Substance: OXYCODONE
  6. CAPECITABINE. [Concomitant]
     Active Substance: CAPECITABINE
     Indication: CHEMOTHERAPY
     Dosage: 500 MG, 2 TABLETS TWICE A DAY
  7. TECTA [Concomitant]
     Active Substance: PANTOPRAZOLE MAGNESIUM
  8. CITALOPRAM [Concomitant]
     Active Substance: CITALOPRAM HYDROBROMIDE
  9. CBD OIL [Concomitant]
     Active Substance: CANNABIDIOL\HERBALS

REACTIONS (1)
  - Biliary cyst [Recovering/Resolving]
